FAERS Safety Report 5212446-2 (Version None)
Quarter: 2007Q1

REPORT INFORMATION
  Report Type: 
  Country: None (occurrence: None)
  Receive Date: 20070118
  Receipt Date: 20070108
  Transmission Date: 20070707
  Serious: Yes (Hospitalization, Other)
  Sender: FDA-Public Use
  Company Number: US-PFIZER INC-2006049640

PATIENT
  Sex: Male

DRUGS (3)
  1. LYRICA [Suspect]
     Dates: start: 20060401, end: 20060403
  2. GABAPENTIN [Suspect]
     Indication: TRIGEMINAL NEURALGIA
  3. NEURONTIN [Suspect]

REACTIONS (7)
  - BLOOD CREATININE INCREASED [None]
  - BLOOD UREA INCREASED [None]
  - COMA [None]
  - CREATININE RENAL CLEARANCE DECREASED [None]
  - DECREASED ACTIVITY [None]
  - DRUG TOXICITY [None]
  - MUSCLE TWITCHING [None]
